FAERS Safety Report 9900867 (Version 1)
Quarter: 2014Q1

REPORT INFORMATION
  Report Type: Report from Study
  Country: US (occurrence: US)
  Receive Date: 20140217
  Receipt Date: 20140217
  Transmission Date: 20141002
  Serious: No
  Sender: FDA-Public Use
  Company Number: US-ABBVIE-13P-163-1064341-00

PATIENT
  Age: 53 Year
  Sex: Male
  Weight: 113.95 kg

DRUGS (8)
  1. SIMCOR 1000/20 [Suspect]
     Indication: BLOOD CHOLESTEROL ABNORMAL
     Dosage: 1000MG/ 20MG
     Dates: start: 201201, end: 201208
  2. SIMCOR 1000/20 [Suspect]
     Dosage: 1000/20 MG DOSE X 2
     Dates: start: 201208
  3. LOVAZA [Concomitant]
     Indication: PRODUCT USED FOR UNKNOWN INDICATION
     Dosage: 2 GRAMS A DAY
  4. LISINOPRIL [Concomitant]
     Indication: PRODUCT USED FOR UNKNOWN INDICATION
     Dosage: 20 MG DAILY
  5. SYNTHROID [Concomitant]
     Indication: PRODUCT USED FOR UNKNOWN INDICATION
     Dosage: .25 MCG DAILY
  6. ASA [Concomitant]
     Indication: PRODUCT USED FOR UNKNOWN INDICATION
     Dosage: 325 MG DAILY
  7. VITAMIN D [Concomitant]
     Indication: PRODUCT USED FOR UNKNOWN INDICATION
     Dosage: 1000 IU A DAY
  8. ANDROGEL [Concomitant]
     Indication: PRODUCT USED FOR UNKNOWN INDICATION
     Dosage: 2 PUMPS A DAY

REACTIONS (3)
  - Blood testosterone decreased [Unknown]
  - Feeling hot [Recovered/Resolved]
  - Fatigue [Unknown]
